FAERS Safety Report 6723789-5 (Version None)
Quarter: 2010Q2

REPORT INFORMATION
  Report Type: 
  Country: None (occurrence: None)
  Receive Date: 20100513
  Receipt Date: 20100305
  Transmission Date: 20101027
  Serious: Yes (Hospitalization)
  Sender: FDA-Public Use
  Company Number: AU-ROCHE-646723

PATIENT
  Sex: Male
  Weight: 83.1 kg

DRUGS (7)
  1. BEVACIZUMAB [Suspect]
     Indication: COLON CANCER
     Dosage: CYCLE 1
     Route: 042
     Dates: start: 20080812
  2. BEVACIZUMAB [Suspect]
     Dosage: CURRENT CYCLE 30 DAY FOLLOW UP
     Route: 042
     Dates: start: 20090623
  3. CAPECITABINE [Suspect]
     Indication: COLON CANCER
     Route: 048
     Dates: start: 20080812
  4. CAPECITABINE [Suspect]
     Dosage: CURRENT CYCLE 30 DAY FOLLOW UP. DOSE REDUCTION 25%
     Route: 048
     Dates: start: 20090106
  5. NEXIUM [Concomitant]
     Indication: ILL-DEFINED DISORDER
     Route: 048
     Dates: start: 20000101
  6. ASPIRIN [Concomitant]
     Indication: PROPHYLAXIS
     Route: 048
     Dates: start: 19960101
  7. XALATAN [Concomitant]
     Indication: GLAUCOMA
     Dosage: EYE DROP
     Route: 047
     Dates: start: 19900101

REACTIONS (1)
  - PERICARDITIS [None]
